FAERS Safety Report 7386068-1 (Version None)
Quarter: 2011Q1

REPORT INFORMATION
  Report Type: 
  Country: None (occurrence: None)
  Receive Date: 20110331
  Receipt Date: 20110321
  Transmission Date: 20110831
  Serious: Yes (Congenital Anomaly, Other)
  Sender: FDA-Public Use
  Company Number: US-JNJFOC-20110310687

PATIENT

DRUGS (2)
  1. TOPAMAX [Suspect]
     Indication: DRUG EXPOSURE DURING PREGNANCY
     Route: 015
  2. TOPAMAX [Suspect]
     Route: 015

REACTIONS (3)
  - MICROCEPHALY [None]
  - CONGENITAL ANOMALY [None]
  - DACRYOSTENOSIS CONGENITAL [None]
